FAERS Safety Report 10516822 (Version 1)
Quarter: 2014Q4

REPORT INFORMATION
  Report Type: Spontaneous
  Country: FR (occurrence: FR)
  Receive Date: 20141014
  Receipt Date: 20141014
  Transmission Date: 20150528
  Serious: Yes (Hospitalization)
  Sender: FDA-Public Use
  Company Number: FR-SA-2014SA136343

PATIENT
  Age: 56 Year
  Sex: Male

DRUGS (5)
  1. JANUVIA [Concomitant]
     Active Substance: SITAGLIPTIN PHOSPHATE
     Dates: end: 20090313
  2. APROVEL [Suspect]
     Active Substance: IRBESARTAN
     Route: 065
     Dates: end: 20090605
  3. GLUCOPHAGE [Suspect]
     Active Substance: METFORMIN HYDROCHLORIDE
     Route: 065
     Dates: end: 20090605
  4. TAHOR [Suspect]
     Active Substance: ATORVASTATIN CALCIUM
     Route: 065
     Dates: end: 20090605
  5. DIAMICRON [Suspect]
     Active Substance: GLICLAZIDE
     Route: 065
     Dates: end: 20090605

REACTIONS (1)
  - Renal tubular disorder [Unknown]

NARRATIVE: CASE EVENT DATE: 20090601
